FAERS Safety Report 13736292 (Version 4)
Quarter: 2018Q4

REPORT INFORMATION
  Report Type: Report from Study
  Country: US (occurrence: US)
  Receive Date: 20170710
  Receipt Date: 20181126
  Transmission Date: 20190204
  Serious: No
  Sender: FDA-Public Use
  Company Number: US-ALEXION PHARMACEUTICALS INC.-A201707651

PATIENT
  Sex: Male

DRUGS (1)
  1. STRENSIQ [Suspect]
     Active Substance: ASFOTASE ALFA
     Indication: HYPOPHOSPHATASIA
     Dosage: 2 MG/KG, TIW
     Route: 058
     Dates: start: 201706

REACTIONS (2)
  - Injection site bruising [Unknown]
  - Injection site pain [Not Recovered/Not Resolved]
